FAERS Safety Report 18980260 (Version 1)
Quarter: 2021Q1

REPORT INFORMATION
  Report Type: Spontaneous
  Country: US (occurrence: US)
  Receive Date: 20210308
  Receipt Date: 20210308
  Transmission Date: 20210420
  Serious: No
  Sender: FDA-Public Use
  Company Number: US-HRARD-202000335

PATIENT

DRUGS (4)
  1. LABETALOL [Concomitant]
     Active Substance: LABETALOL\LABETALOL HYDROCHLORIDE
     Indication: EXPOSURE DURING PREGNANCY
     Route: 064
     Dates: start: 2019
  2. METOPIRONE [Suspect]
     Active Substance: METYRAPONE
     Indication: EXPOSURE DURING PREGNANCY
     Route: 064
     Dates: start: 2019
  3. METOPIRONE [Suspect]
     Active Substance: METYRAPONE
     Indication: EXPOSURE DURING PREGNANCY
     Route: 063
     Dates: start: 2020
  4. LABETALOL [Concomitant]
     Active Substance: LABETALOL\LABETALOL HYDROCHLORIDE
     Indication: EXPOSURE DURING PREGNANCY
     Route: 063
     Dates: start: 2020

REACTIONS (4)
  - Maternal exposure during pregnancy [Recovered/Resolved]
  - Exposure via breast milk [Unknown]
  - Cortisol decreased [Unknown]
  - Off label use [Unknown]

NARRATIVE: CASE EVENT DATE: 2019
